FAERS Safety Report 16923881 (Version 2)
Quarter: 2019Q4

REPORT INFORMATION
  Report Type: Spontaneous
  Country: IL (occurrence: IL)
  Receive Date: 20191016
  Receipt Date: 20191118
  Transmission Date: 20200122
  Serious: Yes (Life-Threatening, Other)
  Sender: FDA-Public Use
  Company Number: NVSC2019IL001542

PATIENT
  Age: 64 Year
  Sex: Male

DRUGS (1)
  1. COSENTYX [Suspect]
     Active Substance: SECUKINUMAB
     Indication: SAPHO SYNDROME
     Dosage: 300 MG, QMO
     Route: 065
     Dates: start: 201808, end: 201909

REACTIONS (3)
  - Product use in unapproved indication [Unknown]
  - Back pain [Unknown]
  - Lymphoma [Unknown]

NARRATIVE: CASE EVENT DATE: 201906
